FAERS Safety Report 6812787-9 (Version None)
Quarter: 2010Q3

REPORT INFORMATION
  Report Type: 
  Country: None (occurrence: None)
  Receive Date: 20100701
  Receipt Date: 20100622
  Transmission Date: 20110219
  Serious: Yes (Hospitalization)
  Sender: FDA-Public Use
  Company Number: B0661815A

PATIENT
  Sex: Female
  Weight: 67 kg

DRUGS (4)
  1. ZOVIRAX [Suspect]
     Indication: ENCEPHALITIS HERPES
     Dosage: 800MG THREE TIMES PER DAY
     Route: 042
     Dates: start: 20100525, end: 20100526
  2. GARDENAL [Suspect]
     Indication: ENCEPHALITIS HERPES
     Route: 042
     Dates: start: 20100525, end: 20100526
  3. PERFALGAN [Suspect]
     Indication: ENCEPHALITIS HERPES
     Dosage: 4G PER DAY
     Route: 042
     Dates: start: 20100525, end: 20100525
  4. ROCEPHIN [Concomitant]
     Route: 065

REACTIONS (3)
  - BLOOD CREATININE INCREASED [None]
  - DRUG ADMINISTRATION ERROR [None]
  - RENAL FAILURE ACUTE [None]
